FAERS Safety Report 5986368-3 (Version None)
Quarter: 2008Q4

REPORT INFORMATION
  Report Type: 
  Country: None (occurrence: None)
  Receive Date: 20081209
  Receipt Date: 20080407
  Transmission Date: 20090506
  Serious: No
  Sender: FDA-Public Use
  Company Number: US-AMGEN-KDL273403

PATIENT
  Sex: Female

DRUGS (2)
  1. ENBREL [Suspect]
     Indication: RHEUMATOID ARTHRITIS
     Route: 058
     Dates: start: 20060407
  2. METHOTREXATE [Concomitant]

REACTIONS (4)
  - COUGH [None]
  - DIARRHOEA [None]
  - RESPIRATORY TRACT CONGESTION [None]
  - SINUSITIS [None]
